FAERS Safety Report 12270204 (Version 1)
Quarter: 2016Q2

REPORT INFORMATION
  Report Type: Spontaneous
  Country: US (occurrence: None)
  Receive Date: 20160414
  Receipt Date: 20160414
  Transmission Date: 20160815
  Serious: Yes (Death)
  Sender: FDA-Public Use
  Company Number: None

PATIENT
  Age: 77 Year
  Sex: Male
  Weight: 73.8 kg

DRUGS (3)
  1. ACTIVASE [Suspect]
     Active Substance: ALTEPLASE
     Indication: CEREBROVASCULAR ACCIDENT
     Dosage: 64.4 MG BOLUS+INFUSION INTRAVENOUS (NOT  OTHERWISE SPECIFIED)
     Route: 042
     Dates: start: 20160406, end: 20160406
  2. ASPIRIN. [Concomitant]
     Active Substance: ASPIRIN
  3. NITROGLYCERIN. [Concomitant]
     Active Substance: NITROGLYCERIN

REACTIONS (2)
  - Brain midline shift [None]
  - Cerebral haemorrhage [None]

NARRATIVE: CASE EVENT DATE: 20160406
